FAERS Safety Report 6011700-4 (Version None)
Quarter: 2008Q4

REPORT INFORMATION
  Report Type: 
  Country: None (occurrence: None)
  Receive Date: 20081218
  Receipt Date: 19960424
  Transmission Date: 20090506
  Serious: Yes (Death)
  Sender: FDA-Public Use
  Company Number: ES-ROCHE-930195058001

PATIENT
  Sex: Male
  Weight: 61 kg

DRUGS (2)
  1. ZALCITABINE [Suspect]
     Route: 048
     Dates: start: 19930512, end: 19930702
  2. ZIDOVUDINE [Suspect]
     Route: 048
     Dates: start: 19900601, end: 19930702

REACTIONS (1)
  - PROGRESSIVE MULTIFOCAL LEUKOENCEPHALOPATHY [None]
